FAERS Safety Report 10341488 (Version 4)
Quarter: 2015Q1

REPORT INFORMATION
  Report Type: Spontaneous
  Country: JP (occurrence: JP)
  Receive Date: 20140725
  Receipt Date: 20150316
  Transmission Date: 20150720
  Serious: Yes (Other)
  Sender: FDA-Public Use
  Company Number: JP-AMGEN-JPNSP2014054678

PATIENT
  Age: 65 Year
  Sex: Female

DRUGS (12)
  1. ZOMETA [Concomitant]
     Active Substance: ZOLEDRONIC ACID
     Dosage: 4MG, 42 TIMES
     Route: 065
     Dates: start: 200811, end: 20130515
  2. AFINITOR [Concomitant]
     Active Substance: EVEROLIMUS
     Indication: METASTASES TO BONE
     Dosage: 5MG OR 10MG, QD
     Route: 048
     Dates: start: 20140604, end: 20140716
  3. FARESTON [Concomitant]
     Active Substance: TOREMIFENE CITRATE
     Indication: METASTASES TO BONE
     Dosage: 60 MG, QD
     Route: 048
     Dates: start: 20130807, end: 20131002
  4. RANMARK [Suspect]
     Active Substance: DENOSUMAB
     Indication: BREAST CANCER
  5. CEFAMEZIN                          /00288502/ [Concomitant]
     Active Substance: CEFAZOLIN
     Dosage: UNK
     Dates: start: 20140415
  6. KLARICID                           /00984601/ [Concomitant]
     Active Substance: CLARITHROMYCIN
  7. FEMARA [Concomitant]
     Active Substance: LETROZOLE
     Indication: METASTASES TO BONE
     Dosage: 2.5 MG, QD
     Route: 048
     Dates: start: 2008, end: 20130806
  8. ZITHROMAC [Concomitant]
     Active Substance: AZITHROMYCIN DIHYDRATE
     Dosage: UNK
  9. RANMARK [Suspect]
     Active Substance: DENOSUMAB
     Indication: METASTASES TO BONE
     Dosage: 120 MG, UNK
     Route: 058
     Dates: start: 20130612, end: 20140716
  10. SAWACILLIN [Concomitant]
     Active Substance: AMOXICILLIN
     Dosage: UNK
     Route: 048
     Dates: start: 20140122
  11. RANMARK [Suspect]
     Active Substance: DENOSUMAB
     Indication: BONE LESION
  12. TS-1 [Concomitant]
     Active Substance: GIMERACIL\OTERACIL\TEGAFUR
     Indication: METASTASES TO BONE
     Dosage: 4 DF, BID
     Route: 048
     Dates: start: 20130910, end: 20130924

REACTIONS (2)
  - Osteonecrosis of jaw [Not Recovered/Not Resolved]
  - Loss of consciousness [Unknown]

NARRATIVE: CASE EVENT DATE: 20140702
